FAERS Safety Report 18409822 (Version 3)
Quarter: 2020Q4

REPORT INFORMATION
  Report Type: Spontaneous
  Country: JP (occurrence: JP)
  Receive Date: 20201021
  Receipt Date: 20201204
  Transmission Date: 20210114
  Serious: Yes (Other)
  Sender: FDA-Public Use
  Company Number: JP-PFIZER INC-2020406250

PATIENT
  Age: 54 Year
  Sex: Female

DRUGS (10)
  1. BETANIS [Concomitant]
     Active Substance: MIRABEGRON
     Dosage: 50 MG/DAY, UNKNOWN FREQ.
     Route: 048
  2. VESICARE [Concomitant]
     Active Substance: SOLIFENACIN SUCCINATE
     Dosage: 2.5 MG/DAY, UNKNOWN FREQ.
     Route: 065
  3. TRAMAL [Concomitant]
     Active Substance: TRAMADOL
     Dosage: 75 MG/DAY, UNKNOWN FREQ.
     Route: 048
  4. MIYA-BM [Concomitant]
     Active Substance: CLOSTRIDIUM BUTYRICUM SPORES STRAIN M-55
     Dosage: 6 DF/DAY, UNKNOWN FREQ.
     Route: 048
  5. LYRICA [Concomitant]
     Active Substance: PREGABALIN
     Dosage: 225 MG/DAY, UNKNOWN FREQ.
     Route: 048
  6. DAIKENCHUTO [Concomitant]
     Active Substance: HERBALS
     Dosage: 6 DOSAGE FORM /DAY
     Route: 048
  7. CELECOX [Suspect]
     Active Substance: CELECOXIB
     Indication: NEURALGIA
     Dosage: 100 MG, 2X/DAY
     Route: 048
     Dates: start: 20150601
  8. CELECOX [Suspect]
     Active Substance: CELECOXIB
     Dosage: 100 MG, ONCE DAILY, IN THE MORNING
     Route: 048
     Dates: end: 20201001
  9. LANSOPRAZOLE. [Concomitant]
     Active Substance: LANSOPRAZOLE
     Dosage: UNK UNK, UNKNOWN FREQ.
     Route: 048
     Dates: end: 20201001
  10. MAGNESIUM OXIDE. [Concomitant]
     Active Substance: MAGNESIUM OXIDE
     Dosage: 330 MG/DAY, UNKNOWN FREQ.
     Route: 048

REACTIONS (3)
  - Off label use [Unknown]
  - Large intestinal ulcer [Unknown]
  - Product use in unapproved indication [Unknown]

NARRATIVE: CASE EVENT DATE: 20150601
